FAERS Safety Report 10569424 (Version 3)
Quarter: 2014Q4

REPORT INFORMATION
  Report Type: Report from Study
  Country: US (occurrence: US)
  Receive Date: 20141106
  Receipt Date: 20141219
  Transmission Date: 20150529
  Serious: Yes (Hospitalization)
  Sender: FDA-Public Use
  Company Number: US-TEVA-518530USA

PATIENT
  Age: 61 Year
  Sex: Female
  Weight: 69.9 kg

DRUGS (17)
  1. ROCEPHIN [Concomitant]
     Active Substance: CEFTRIAXONE SODIUM
     Dates: start: 20140929
  2. DIOVAN [Concomitant]
     Active Substance: VALSARTAN
     Dates: start: 1999
  3. ZOFRAN [Concomitant]
     Active Substance: ONDANSETRON HYDROCHLORIDE
  4. DULOVA [Concomitant]
  5. SINGULAIR [Concomitant]
     Active Substance: MONTELUKAST SODIUM
     Dates: start: 2007
  6. PAXIL [Concomitant]
     Active Substance: PAROXETINE HYDROCHLORIDE
     Dates: start: 1997
  7. TRIAMCINOLONE [Concomitant]
     Active Substance: TRIAMCINOLONE
     Dates: start: 201407
  8. HYPERSAL [Concomitant]
     Dates: start: 201409
  9. TREANDA [Suspect]
     Active Substance: BENDAMUSTINE HYDROCHLORIDE
     Indication: HODGKIN^S DISEASE
     Dosage: 90 MG/M2 DAILY; LAST DOSE ADMINISTERED 15-OCT-2014
     Route: 042
     Dates: start: 20140903
  10. TESSALON [Concomitant]
     Active Substance: BENZONATATE
  11. HYDROXYZINE [Concomitant]
     Active Substance: HYDROXYZINE\HYDROXYZINE HYDROCHLORIDE
     Dates: start: 201409
  12. GAMMAGARD [Concomitant]
     Active Substance: HUMAN IMMUNOGLOBULIN G
     Dates: start: 2005
  13. CLARITIN [Concomitant]
     Active Substance: LORATADINE
     Dates: start: 2011
  14. MULTIVITAMINS [Concomitant]
     Active Substance: VITAMINS
     Dates: start: 201305
  15. PREMARIN [Concomitant]
     Active Substance: ESTROGENS, CONJUGATED
     Dates: start: 1990
  16. DULERA [Concomitant]
     Active Substance: FORMOTEROL FUMARATE DIHYDRATE\MOMETASONE FUROATE
     Dates: start: 20140902
  17. GEMCITABINE [Suspect]
     Active Substance: GEMCITABINE\GEMCITABINE HYDROCHLORIDE
     Indication: HODGKIN^S DISEASE
     Dosage: 1000 MG/M2 DAILY; LAST DOSE ADMINISTERED 15-OCT-2014
     Route: 042
     Dates: start: 20140903

REACTIONS (1)
  - Clostridium difficile infection [Recovered/Resolved]

NARRATIVE: CASE EVENT DATE: 20141022
